FAERS Safety Report 20170155 (Version 1)
Quarter: 2021Q4

REPORT INFORMATION
  Report Type: Report from Study
  Country: MX (occurrence: MX)
  Receive Date: 20211210
  Receipt Date: 20211210
  Transmission Date: 20220303
  Serious: Yes (Other)
  Sender: FDA-Public Use
  Company Number: MX-NOVARTISPH-NVSC2021MX280647

PATIENT
  Age: 38 Year
  Sex: Male

DRUGS (1)
  1. GILENYA [Suspect]
     Active Substance: FINGOLIMOD HYDROCHLORIDE
     Indication: Multiple sclerosis
     Dosage: QOD (ON MONDAY,WEDNESDAY AND FRIDAY)
     Route: 048

REACTIONS (8)
  - Disease progression [Unknown]
  - Neurogenic bladder [Unknown]
  - Atrophy [Unknown]
  - Immunodeficiency [Unknown]
  - Glaucoma [Unknown]
  - Lymphocyte count decreased [Unknown]
  - Multiple sclerosis relapse [Unknown]
  - Inappropriate schedule of product administration [Not Recovered/Not Resolved]
